FAERS Safety Report 20025383 (Version 1)
Quarter: 2021Q4

REPORT INFORMATION
  Report Type: Report from Study
  Country: US (occurrence: US)
  Receive Date: 20211102
  Receipt Date: 20211102
  Transmission Date: 20220303
  Serious: Yes (Other)
  Sender: FDA-Public Use
  Company Number: US-JAZZ-2021-US-017221

PATIENT
  Sex: Female

DRUGS (4)
  1. XYREM [Suspect]
     Active Substance: SODIUM OXYBATE
     Indication: Narcolepsy
     Dosage: 2.25 GRAM, BID
     Route: 048
     Dates: start: 202010, end: 202010
  2. XYREM [Suspect]
     Active Substance: SODIUM OXYBATE
     Dosage: DOSE ADJUSTMENT
     Route: 048
     Dates: start: 202010, end: 202103
  3. XYREM [Suspect]
     Active Substance: SODIUM OXYBATE
     Dosage: 3.75 GRAM, BID
     Route: 048
     Dates: start: 202103
  4. SOLIFENACIN [Suspect]
     Active Substance: SOLIFENACIN
     Indication: Product used for unknown indication
     Dosage: UNK
     Dates: start: 20210901

REACTIONS (8)
  - Metabolic surgery [Unknown]
  - Bacterial infection [Not Recovered/Not Resolved]
  - Irritable bowel syndrome [Not Recovered/Not Resolved]
  - Bone loss [Not Recovered/Not Resolved]
  - Urinary incontinence [Not Recovered/Not Resolved]
  - Alopecia [Unknown]
  - Dry mouth [Not Recovered/Not Resolved]
  - Condition aggravated [Not Recovered/Not Resolved]
